FAERS Safety Report 6157462-1 (Version None)
Quarter: 2009Q2

REPORT INFORMATION
  Report Type: 
  Country: None (occurrence: None)
  Receive Date: 20090414
  Receipt Date: 20090330
  Transmission Date: 20091009
  Serious: Yes (Hospitalization)
  Sender: FDA-Public Use
  Company Number: 2009000968

PATIENT
  Age: 65 Year
  Sex: Male
  Weight: 73.3 kg

DRUGS (3)
  1. ERLOTINIB (ERLOTINIB) (TABLET) (ERLOTINIB) [Suspect]
     Indication: NON-SMALL CELL LUNG CANCER
     Dosage: (150 MG, QD), ORAL
     Route: 048
     Dates: start: 20090203
  2. PACLITAXEL [Suspect]
     Indication: NON-SMALL CELL LUNG CANCER
     Dosage: (200 MG/M2, DAY 1), INTRAVENOUS
     Route: 042
     Dates: start: 20090203
  3. CARBOPLATIN [Suspect]
     Indication: NON-SMALL CELL LUNG CANCER

REACTIONS (5)
  - CONFUSIONAL STATE [None]
  - FEBRILE NEUTROPENIA [None]
  - LEUKOPENIA [None]
  - MENTAL IMPAIRMENT [None]
  - SPEECH DISORDER [None]
